FAERS Safety Report 5506730-2 (Version None)
Quarter: 2007Q4

REPORT INFORMATION
  Report Type: 
  Country: None (occurrence: None)
  Receive Date: 20071105
  Receipt Date: 20071024
  Transmission Date: 20080405
  Serious: Yes (Hospitalization)
  Sender: FDA-Public Use
  Company Number: US-AMGEN-QUU241542

PATIENT
  Sex: Female
  Weight: 72.6 kg

DRUGS (1)
  1. ENBREL [Suspect]
     Indication: RHEUMATOID ARTHRITIS
     Route: 058
     Dates: start: 20051003, end: 20070714

REACTIONS (3)
  - DERMATITIS [None]
  - ECZEMA [None]
  - STEVENS-JOHNSON SYNDROME [None]
